FAERS Safety Report 6769789-0 (Version None)
Quarter: 2010Q2

REPORT INFORMATION
  Report Type: 
  Country: None (occurrence: None)
  Receive Date: 20100615
  Receipt Date: 20100607
  Transmission Date: 20101027
  Serious: Yes (Hospitalization)
  Sender: FDA-Public Use
  Company Number: US-SANOFI-AVENTIS-2010SA032879

PATIENT
  Age: 80 Year
  Sex: Female

DRUGS (4)
  1. LANTUS [Suspect]
     Indication: TYPE 2 DIABETES MELLITUS
     Route: 058
     Dates: start: 20000101
  2. LANTUS [Suspect]
     Dosage: DOSE:3 UNIT(S)
     Route: 058
     Dates: start: 20060101
  3. OPTICLICK [Suspect]
     Indication: TYPE 2 DIABETES MELLITUS
     Dates: start: 20000101
  4. OPTICLICK [Suspect]
     Dates: start: 20060101

REACTIONS (3)
  - CEREBROVASCULAR ACCIDENT [None]
  - SPEECH DISORDER [None]
  - SYNCOPE [None]
